FAERS Safety Report 4382308-1 (Version None)
Quarter: 2004Q2

REPORT INFORMATION
  Report Type: 
  Country: None (occurrence: None)
  Receive Date: 20040621
  Receipt Date: 20040621
  Transmission Date: 20050107
  Serious: Yes (Disabling)
  Sender: FDA-Public Use
  Company Number: None

PATIENT
  Age: 49 Year
  Sex: Male
  Weight: 106.5953 kg

DRUGS (1)
  1. GENTAMICIN [Suspect]
     Dosage: GENTAMICIN ONCE DAILY INTRAVENOUS
     Route: 042
     Dates: start: 20030715, end: 20030901

REACTIONS (2)
  - BALANCE DISORDER [None]
  - INNER EAR DISORDER [None]
